FAERS Safety Report 8826451 (Version 2)
Quarter: 2013Q1

REPORT INFORMATION
  Report Type: Spontaneous
  Country: BR (occurrence: BR)
  Receive Date: 20121008
  Receipt Date: 20130206
  Transmission Date: 20140127
  Serious: Yes (Other)
  Sender: FDA-Public Use
  Company Number: PHHY2012BR085881

PATIENT
  Age: 66 Year
  Sex: Female

DRUGS (5)
  1. SANDIMMUN NEORAL [Suspect]
     Indication: KIDNEY TRANSPLANT REJECTION
     Dosage: 1 DF, BID
     Route: 048
  2. CICLOSPORIN [Suspect]
     Indication: KIDNEY TRANSPLANT REJECTION
     Dosage: 1 DF, BID
     Route: 048
     Dates: start: 2002
  3. MYCOPHENOLATE [Concomitant]
     Indication: KIDNEY TRANSPLANT REJECTION
     Dosage: 4 DF, UNK
     Route: 048
     Dates: start: 2002
  4. VASOPRIL [Concomitant]
     Indication: HYPERTENSION
     Dosage: 2 DF
     Route: 048
  5. CORTICORTEN [Concomitant]
     Indication: DIABETES MELLITUS
     Dosage: 1 DF, UNK
     Dates: start: 19920826

REACTIONS (5)
  - Kidney transplant rejection [Recovered/Resolved]
  - Complications of transplant surgery [Recovered/Resolved]
  - Arthritis [Recovering/Resolving]
  - Osteoarthritis [Recovering/Resolving]
  - Blood cholesterol [Recovering/Resolving]
